FAERS Safety Report 21247789 (Version 1)
Quarter: 2022Q3

REPORT INFORMATION
  Report Type: Spontaneous
  Country: FR (occurrence: FR)
  Receive Date: 20220824
  Receipt Date: 20220824
  Transmission Date: 20221027
  Serious: Yes (Other)
  Sender: FDA-Public Use
  Company Number: None

PATIENT
  Age: 78 Year
  Sex: Male

DRUGS (1)
  1. VERAPAMIL [Suspect]
     Active Substance: VERAPAMIL HYDROCHLORIDE
     Indication: Cardiac failure
     Dosage: UNK
     Route: 048
     Dates: start: 20220712

REACTIONS (1)
  - Palmar erythema [Recovering/Resolving]

NARRATIVE: CASE EVENT DATE: 20220701
